FAERS Safety Report 8987985 (Version 2)
Quarter: 2013Q1

REPORT INFORMATION
  Report Type: Spontaneous
  Country: US (occurrence: US)
  Receive Date: 20121227
  Receipt Date: 20130123
  Transmission Date: 20140127
  Serious: Yes (Death)
  Sender: FDA-Public Use
  Company Number: US-TEVA-377447USA

PATIENT
  Sex: Male

DRUGS (1)
  1. FENTORA [Suspect]
     Indication: LEUKAEMIA
     Route: 002
     Dates: start: 2006

REACTIONS (2)
  - Death [Fatal]
  - Off label use [Unknown]
